FAERS Safety Report 23118270 (Version 2)
Quarter: 2023Q4

REPORT INFORMATION
  Report Type: Report from Study
  Country: CO (occurrence: CO)
  Receive Date: 20231027
  Receipt Date: 20231114
  Transmission Date: 20240110
  Serious: Yes (Death, Hospitalization, Other)
  Sender: FDA-Public Use
  Company Number: CO-ABBVIE-5394999

PATIENT
  Age: 79 Year
  Sex: Female
  Weight: 79 kg

DRUGS (4)
  1. VENCLEXTA [Suspect]
     Active Substance: VENETOCLAX
     Indication: Acute myeloid leukaemia
     Dosage: FORM STRENGTH: 100 MILLIGRAM?FREQUENCY TEXT: 5 DAYS PER MONTH
     Route: 048
     Dates: start: 20220703, end: 20230821
  2. TRIMETHOPRIM [Concomitant]
     Active Substance: TRIMETHOPRIM
     Indication: Antiviral prophylaxis
     Dates: start: 2022
  3. AZACITIDINE [Concomitant]
     Active Substance: AZACITIDINE
     Indication: Adjuvant therapy
     Dosage: CYCLE 8?FREQUENCY TEXT:  5 DAYS PER MONTH
     Dates: start: 202306, end: 202306
  4. ACYCLOVIR [Concomitant]
     Active Substance: ACYCLOVIR
     Indication: Antifungal treatment
     Dates: start: 2022

REACTIONS (6)
  - Bacterial infection [Fatal]
  - Platelet count decreased [Not Recovered/Not Resolved]
  - White blood cell count decreased [Unknown]
  - Loss of consciousness [Unknown]
  - Red blood cell count decreased [Unknown]
  - White blood cell count decreased [Recovered/Resolved]

NARRATIVE: CASE EVENT DATE: 20230801
